FAERS Safety Report 7904595-2 (Version None)
Quarter: 2011Q4

REPORT INFORMATION
  Report Type: 
  Country: None (occurrence: None)
  Receive Date: 20111109
  Receipt Date: 20110224
  Transmission Date: 20120403
  Serious: Yes (Hospitalization)
  Sender: FDA-Public Use
  Company Number: US-GLAXOSMITHKLINE-A0915619A

PATIENT
  Age: 67 Year
  Sex: Male

DRUGS (1)
  1. AVANDIA [Suspect]
     Indication: DIABETES MELLITUS
     Dosage: 2MG TWICE PER DAY
     Route: 048
     Dates: start: 20050101, end: 20090901

REACTIONS (7)
  - ANGINA PECTORIS [None]
  - DIALYSIS [None]
  - DYSPNOEA [None]
  - CORONARY ARTERY DISEASE [None]
  - CORONARY ARTERY BYPASS [None]
  - CHEST PAIN [None]
  - RENAL FAILURE [None]
